FAERS Safety Report 10053662 (Version 1)
Quarter: 2014Q2

REPORT INFORMATION
  Report Type: Spontaneous
  Country: US (occurrence: US)
  Receive Date: 20140402
  Receipt Date: 20140402
  Transmission Date: 20141212
  Serious: No
  Sender: FDA-Public Use
  Company Number: US-PFIZER INC-2014092047

PATIENT
  Sex: Male

DRUGS (2)
  1. LYRICA [Suspect]
     Indication: NERVE COMPRESSION
     Dosage: 75 MG, 2X/DAY
  2. LYRICA [Suspect]
     Dosage: 100MG IN THE MORNING, FIVE HOURS LATER 75MG AND FIVE HOURS LATER 75MG

REACTIONS (2)
  - Pain [Unknown]
  - Drug ineffective [Unknown]
